FAERS Safety Report 13585643 (Version 1)
Quarter: 2017Q2

REPORT INFORMATION
  Report Type: Spontaneous
  Country: IN (occurrence: IN)
  Receive Date: 20170526
  Receipt Date: 20170526
  Transmission Date: 20170830
  Serious: Yes (Other)
  Sender: FDA-Public Use
  Company Number: IN-PFIZER INC-2017227680

PATIENT
  Age: 68 Year
  Sex: Male

DRUGS (1)
  1. SUTENT [Suspect]
     Active Substance: SUNITINIB MALATE
     Indication: METASTATIC RENAL CELL CARCINOMA
     Dosage: 37.5 MG, ONCE A DAY
     Route: 048
     Dates: start: 20140411, end: 201704

REACTIONS (5)
  - Blood urine present [Unknown]
  - Abasia [Unknown]
  - Pain [Unknown]
  - Neoplasm progression [Unknown]
  - Haematochezia [Unknown]
